FAERS Safety Report 6127772-2 (Version None)
Quarter: 2009Q1

REPORT INFORMATION
  Report Type: 
  Country: None (occurrence: None)
  Receive Date: 20090320
  Receipt Date: 20090320
  Transmission Date: 20090719
  Serious: Yes (Other)
  Sender: FDA-Public Use
  Company Number: None

PATIENT
  Sex: Female
  Weight: 74.8435 kg

DRUGS (5)
  1. BUPROPION HCL [Suspect]
     Indication: DYSTHYMIC DISORDER
     Dosage: 300 MG 1 TAB DAILY ORAL
     Route: 048
     Dates: start: 20081223, end: 20090101
  2. BUPROPION HCL [Suspect]
     Indication: DYSTHYMIC DISORDER
     Dosage: 300 MG 1 TAB DAILY ORAL
     Route: 048
     Dates: start: 20090126
  3. RELAFEN [Concomitant]
  4. ZANAFLEX [Concomitant]
  5. METOPROLOL [Concomitant]

REACTIONS (3)
  - ABDOMINAL PAIN UPPER [None]
  - FLATULENCE [None]
  - PRODUCT QUALITY ISSUE [None]
